FAERS Safety Report 7636511-5 (Version None)
Quarter: 2011Q3

REPORT INFORMATION
  Report Type: 
  Country: None (occurrence: None)
  Receive Date: 20110726
  Receipt Date: 20110720
  Transmission Date: 20111222
  Serious: Yes (Disabling, Other)
  Sender: FDA-Public Use
  Company Number: US-MERCK-1107USA02605

PATIENT
  Age: 55 Year
  Sex: Female

DRUGS (2)
  1. ZOCOR [Suspect]
     Indication: BLOOD CHOLESTEROL INCREASED
     Route: 048
     Dates: end: 20091201
  2. GEMFIBROZIL [Concomitant]
     Route: 065

REACTIONS (3)
  - MYOPATHY [None]
  - DIPLEGIA [None]
  - PARALYSIS [None]
